FAERS Safety Report 7482055-3 (Version None)
Quarter: 2011Q2

REPORT INFORMATION
  Report Type: 
  Country: None (occurrence: None)
  Receive Date: 20110516
  Receipt Date: 20110301
  Transmission Date: 20111010
  Serious: Yes (Other)
  Sender: FDA-Public Use
  Company Number: PHHY2011AU16809

PATIENT
  Sex: Male

DRUGS (5)
  1. PAROXETINE HCL [Suspect]
     Dosage: 40 MG, UNK
     Route: 048
  2. PRISTIQ [Concomitant]
     Dosage: UNK UKN, UNK
  3. CLOPINE [Concomitant]
     Dosage: UNK UKN, UNK
  4. PAROXETINE HCL [Suspect]
     Dosage: UNK UKN, UNK
  5. VALIUM [Concomitant]
     Dosage: UNK UKN, UNK

REACTIONS (8)
  - ELECTRIC SHOCK [None]
  - INTENTIONAL DRUG MISUSE [None]
  - DIARRHOEA [None]
  - VISION BLURRED [None]
  - PALPITATIONS [None]
  - HEADACHE [None]
  - HYPERHIDROSIS [None]
  - BACK PAIN [None]
